FAERS Safety Report 10076779 (Version 1)
Quarter: 2014Q2

REPORT INFORMATION
  Report Type: Spontaneous
  Country: JP (occurrence: JP)
  Receive Date: 20140414
  Receipt Date: 20140414
  Transmission Date: 20141212
  Serious: Yes (Hospitalization)
  Sender: FDA-Public Use
  Company Number: JP-PFIZER INC-2014099751

PATIENT
  Sex: Female

DRUGS (1)
  1. ATARAX-P [Suspect]
     Dosage: UNK
     Route: 048

REACTIONS (1)
  - Diabetes mellitus [Unknown]
